FAERS Safety Report 18627886 (Version 1)
Quarter: 2020Q4

REPORT INFORMATION
  Report Type: Spontaneous
  Country: US (occurrence: US)
  Receive Date: 20201217
  Receipt Date: 20201217
  Transmission Date: 20210114
  Serious: No
  Sender: FDA-Public Use
  Company Number: US-PFIZER INC-2020497182

PATIENT
  Age: 75 Year
  Sex: Male

DRUGS (2)
  1. ISOSORBIDE. [Suspect]
     Active Substance: ISOSORBIDE
     Dosage: 30 MG, (ISOSORBIDE 30 MG)
  2. LYRICA [Suspect]
     Active Substance: PREGABALIN
     Dosage: UNK

REACTIONS (1)
  - Headache [Unknown]
